FAERS Safety Report 22064466 (Version 1)
Quarter: 2023Q1

REPORT INFORMATION
  Report Type: Spontaneous
  Country: US (occurrence: US)
  Receive Date: 20230306
  Receipt Date: 20230306
  Transmission Date: 20230418
  Serious: Yes (Death)
  Sender: FDA-Public Use
  Company Number: US-Vifor (International) Inc.-VIT-2023-01515

PATIENT
  Age: 74 Year
  Sex: Female
  Weight: 84.1 kg

DRUGS (1)
  1. MIRCERA [Suspect]
     Active Substance: METHOXY POLYETHYLENE GLYCOL-EPOETIN BETA
     Indication: Nephrogenic anaemia
     Route: 040
     Dates: start: 20230216, end: 20230216

REACTIONS (6)
  - Unresponsive to stimuli [Fatal]
  - Respiratory arrest [Fatal]
  - Pulse absent [Fatal]
  - Blood pressure systolic decreased [Fatal]
  - Blood pressure diastolic increased [Fatal]
  - Heart rate increased [Fatal]

NARRATIVE: CASE EVENT DATE: 20230216
